FAERS Safety Report 6652446-9 (Version None)
Quarter: 2010Q1

REPORT INFORMATION
  Report Type: 
  Country: None (occurrence: None)
  Receive Date: 20100325
  Receipt Date: 20100322
  Transmission Date: 20100710
  Serious: Yes (Other)
  Sender: FDA-Public Use
  Company Number: US-MERCK-0906USA04969

PATIENT
  Age: 56 Year
  Sex: Female

DRUGS (2)
  1. FOSAMAX [Suspect]
     Indication: OSTEOPOROSIS
     Route: 048
     Dates: end: 20070107
  2. FOSAMAX [Suspect]
     Route: 048
     Dates: end: 20070107

REACTIONS (5)
  - BONE DENSITY DECREASED [None]
  - GINGIVAL INFECTION [None]
  - NON-HODGKIN'S LYMPHOMA [None]
  - OSTEONECROSIS [None]
  - TOOTH FRACTURE [None]
